FAERS Safety Report 9117246 (Version 1)
Quarter: 2013Q1

REPORT INFORMATION
  Report Type: Spontaneous
  Country: FR (occurrence: FR)
  Receive Date: 20130225
  Receipt Date: 20130225
  Transmission Date: 20140127
  Serious: Yes (Other)
  Sender: FDA-Public Use
  Company Number: FR-ELI_LILLY_AND_COMPANY-FR201302006670

PATIENT
  Age: 50 Year
  Sex: Male

DRUGS (1)
  1. CYMBALTA [Suspect]

REACTIONS (2)
  - Necrosis [Recovered/Resolved]
  - Dermatosis [Recovered/Resolved]
